FAERS Safety Report 6386299-3 (Version None)
Quarter: 2009Q3

REPORT INFORMATION
  Report Type: 
  Country: None (occurrence: None)
  Receive Date: 20090929
  Receipt Date: 20090401
  Transmission Date: 20100115
  Serious: No
  Sender: FDA-Public Use
  Company Number: 280481

PATIENT
  Age: 78 Year
  Sex: Male
  Weight: 97.5 kg

DRUGS (1)
  1. LUCENTIS [Suspect]
     Indication: MACULAR DEGENERATION

REACTIONS (2)
  - BLOOD PRESSURE INCREASED [None]
  - OCULAR HYPERAEMIA [None]
